FAERS Safety Report 19958262 (Version 3)
Quarter: 2021Q4

REPORT INFORMATION
  Report Type: Spontaneous
  Country: US (occurrence: US)
  Receive Date: 20211015
  Receipt Date: 20211117
  Transmission Date: 20220303
  Serious: Yes (Death)
  Sender: FDA-Public Use
  Company Number: US-ELI_LILLY_AND_COMPANY-US202110002972

PATIENT
  Sex: Female

DRUGS (20)
  1. ETESEVIMAB [Suspect]
     Active Substance: ETESEVIMAB
     Indication: COVID-19
     Dosage: 700 MG, SINGLE
     Route: 064
     Dates: start: 20210927, end: 20210927
  2. ETESEVIMAB [Suspect]
     Active Substance: ETESEVIMAB
     Indication: COVID-19
     Dosage: 700 MG, SINGLE
     Route: 064
     Dates: start: 20210927, end: 20210927
  3. ETESEVIMAB [Suspect]
     Active Substance: ETESEVIMAB
     Dosage: 700 MG, SINGLE
     Route: 064
     Dates: start: 20210927, end: 20210927
  4. ETESEVIMAB [Suspect]
     Active Substance: ETESEVIMAB
     Dosage: 700 MG, SINGLE
     Route: 064
     Dates: start: 20210927, end: 20210927
  5. BAMLANIVIMAB [Suspect]
     Active Substance: BAMLANIVIMAB
     Indication: COVID-19
     Dosage: 700 MG, SINGLE
     Route: 064
     Dates: start: 20210927, end: 20210927
  6. BAMLANIVIMAB [Suspect]
     Active Substance: BAMLANIVIMAB
     Indication: COVID-19
     Dosage: 700 MG, SINGLE
     Route: 064
     Dates: start: 20210927, end: 20210927
  7. PRENATAL MULTIVITAMIN + DHA [Concomitant]
     Dosage: 0.8 MG, DAILY
  8. PRENATAL MULTIVITAMIN + DHA [Concomitant]
     Dosage: 0.8 MG, DAILY
  9. FOLIC ACID [Concomitant]
     Active Substance: FOLIC ACID
     Dosage: 1 MG, DAILY
     Dates: start: 20210528, end: 20211004
  10. FOLIC ACID [Concomitant]
     Active Substance: FOLIC ACID
     Dosage: 1 MG, DAILY
     Dates: start: 20210528, end: 20211004
  11. LEVETIRACETAM [Concomitant]
     Active Substance: LEVETIRACETAM
     Dosage: 2 DOSAGE FORM, BID
     Dates: start: 20210903
  12. LEVETIRACETAM [Concomitant]
     Active Substance: LEVETIRACETAM
     Dosage: 2 DOSAGE FORM, BID
     Dates: start: 20210903
  13. VALACYCLOVIR [Concomitant]
     Active Substance: VALACYCLOVIR HYDROCHLORIDE
     Dosage: 500 MG, BID
     Dates: start: 20210907
  14. VALACYCLOVIR [Concomitant]
     Active Substance: VALACYCLOVIR HYDROCHLORIDE
     Dosage: 500 MG, BID
     Dates: start: 20210907
  15. DIPHENHYDRAMINE [Concomitant]
     Active Substance: DIPHENHYDRAMINE
     Dosage: 50 MG, UNKNOWN
     Dates: start: 20210927
  16. DIPHENHYDRAMINE [Concomitant]
     Active Substance: DIPHENHYDRAMINE
     Dosage: 50 MG, UNKNOWN
     Dates: start: 20210927
  17. ACETAMINOPHEN [Concomitant]
     Active Substance: ACETAMINOPHEN
     Dosage: 325 MG, UNKNOWN
     Dates: start: 20210927
  18. ACETAMINOPHEN [Concomitant]
     Active Substance: ACETAMINOPHEN
     Dosage: 325 MG, UNKNOWN
     Dates: start: 20210927
  19. SODIUM CHLORIDE [Concomitant]
     Active Substance: SODIUM CHLORIDE
     Dosage: 50 ML, UNKNOWN
     Dates: start: 20210927
  20. SODIUM CHLORIDE [Concomitant]
     Active Substance: SODIUM CHLORIDE
     Dosage: 50 ML, UNKNOWN
     Dates: start: 20210927

REACTIONS (2)
  - Foetal death [Fatal]
  - Foetal exposure during pregnancy [Unknown]

NARRATIVE: CASE EVENT DATE: 20210927
